FAERS Safety Report 7225743-6 (Version None)
Quarter: 2011Q1

REPORT INFORMATION
  Report Type: 
  Country: None (occurrence: None)
  Receive Date: 20110113
  Receipt Date: 20101210
  Transmission Date: 20110831
  Serious: No
  Sender: FDA-Public Use
  Company Number: US-NOVEN-10US001431

PATIENT
  Sex: Female
  Weight: 58.957 kg

DRUGS (2)
  1. FENTANYL-100 [Suspect]
     Indication: PAIN
     Dosage: 100 UG/HR Q72HR
     Route: 062
     Dates: start: 20101103
  2. BLOOD PRESSURE MEDS [Concomitant]
     Indication: HYPERTENSION

REACTIONS (2)
  - PRODUCT QUALITY ISSUE [None]
  - DRUG INEFFECTIVE [None]
